FAERS Safety Report 9634222 (Version 4)
Quarter: 2013Q4

REPORT INFORMATION
  Report Type: Spontaneous
  Country: ES (occurrence: ES)
  Receive Date: 20131021
  Receipt Date: 20131206
  Transmission Date: 20140711
  Serious: Yes (Other)
  Sender: FDA-Public Use
  Company Number: ES-PFIZER INC-2013296658

PATIENT
  Age: 57 Year
  Sex: Male

DRUGS (2)
  1. CAVERJECT [Suspect]
     Dosage: 20 MG, 2X/WEEK
     Route: 017
  2. ATORVASTATIN [Concomitant]

REACTIONS (6)
  - Loss of consciousness [Unknown]
  - Abnormal behaviour [Unknown]
  - Amnesia [Unknown]
  - Disorientation [Recovered/Resolved]
  - Product quality issue [Unknown]
  - Drug ineffective [Unknown]
